FAERS Safety Report 8389900 (Version 2)
Quarter: 2012Q4

REPORT INFORMATION
  Report Type: 
  Country: JP (occurrence: JP)
  Receive Date: 20120203
  Receipt Date: 20121113
  Transmission Date: 20130627
  Serious: Yes (Other)
  Sender: FDA-Public Use
  Company Number: PHHY2012JP007377

PATIENT
  Age: 78 Year
  Sex: Male

DRUGS (1)
  1. ZOMETA [Suspect]
     Indication: METASTASES TO BONE
     Dosage: 4 mg, (per administration)
     Route: 041
     Dates: start: 20120120

REACTIONS (7)
  - Hypocalcaemia [Recovered/Resolved]
  - Convulsion [Recovered/Resolved]
  - Blood calcium decreased [Recovered/Resolved]
  - Hypoaesthesia [Recovered/Resolved]
  - Arrhythmia [Recovered/Resolved]
  - Tetany [Recovered/Resolved]
  - Hypophosphataemia [Unknown]
